FAERS Safety Report 9363137 (Version 1)
Quarter: 2013Q2

REPORT INFORMATION
  Report Type: Spontaneous
  Country: US (occurrence: None)
  Receive Date: 20130620
  Receipt Date: 20130620
  Transmission Date: 20140414
  Serious: Yes (Death)
  Sender: FDA-Public Use
  Company Number: AMG201300099

PATIENT
  Sex: 0

DRUGS (1)
  1. FERAHEME (FERUMOXYTOL) INJECTION, 510MG [Suspect]

REACTIONS (1)
  - Death [None]
